FAERS Safety Report 6257107-6 (Version None)
Quarter: 2009Q3

REPORT INFORMATION
  Report Type: 
  Country: None (occurrence: None)
  Receive Date: 20090706
  Receipt Date: 20090629
  Transmission Date: 20100115
  Serious: Yes (Life-Threatening)
  Sender: FDA-Public Use
  Company Number: B0581261A

PATIENT
  Age: 32 Year
  Sex: Female

DRUGS (1)
  1. AUGMENTIN '125' [Suspect]
     Indication: PROPHYLAXIS OF ABORTION
     Dosage: 3G PER DAY
     Route: 065
     Dates: start: 20090618, end: 20090620

REACTIONS (3)
  - CHEST PAIN [None]
  - CHILLS [None]
  - DYSPNOEA [None]
